FAERS Safety Report 4814930-X (Version None)
Quarter: 2005Q4

REPORT INFORMATION
  Report Type: 
  Country: None (occurrence: None)
  Receive Date: 20051026
  Receipt Date: 20051014
  Transmission Date: 20060501
  Serious: Yes (Other)
  Sender: FDA-Public Use
  Company Number: 2005127302

PATIENT
  Sex: 0

DRUGS (2)
  1. DEPO-PROVERA [Suspect]
     Indication: CONTRACEPTION
     Dosage: 150 MG (150 MG, SINGLE INJECTION)
     Dates: start: 20050407, end: 20050407
  2. PROVERA [Suspect]
     Indication: AMENORRHOEA
     Dosage: DAILY, ORAL
     Route: 048
     Dates: start: 20050701

REACTIONS (7)
  - ABDOMINAL PAIN [None]
  - ABORTION SPONTANEOUS [None]
  - ANAEMIA [None]
  - DRUG EXPOSURE DURING PREGNANCY [None]
  - PREGNANCY INDUCED HYPERTENSION [None]
  - PREGNANCY WITH INJECTABLE CONTRACEPTIVE [None]
  - PULMONARY APLASIA [None]
